FAERS Safety Report 14256673 (Version 2)
Quarter: 2018Q1

REPORT INFORMATION
  Report Type: Spontaneous
  Country: US (occurrence: US)
  Receive Date: 20171206
  Receipt Date: 20180109
  Transmission Date: 20180508
  Serious: Yes (Other)
  Sender: FDA-Public Use
  Company Number: US-PFIZER INC-2017519805

PATIENT
  Age: 65 Year
  Sex: Female

DRUGS (2)
  1. GABAPENTIN. [Suspect]
     Active Substance: GABAPENTIN
     Dosage: 400 MG, 3X/DAY
     Dates: start: 20171004
  2. GABAPENTIN. [Suspect]
     Active Substance: GABAPENTIN
     Indication: POLYNEUROPATHY
     Dosage: 300 MG, 3X/DAY

REACTIONS (9)
  - Drug ineffective for unapproved indication [Unknown]
  - Rash [Unknown]
  - Insomnia [Unknown]
  - Rash macular [Recovered/Resolved]
  - Pancreatic disorder [Unknown]
  - Abdominal pain upper [Recovered/Resolved]
  - Muscle spasms [Recovered/Resolved]
  - Muscle tightness [Unknown]
  - Throat tightness [Unknown]

NARRATIVE: CASE EVENT DATE: 2017
